FAERS Safety Report 10677235 (Version 1)
Quarter: 2014Q4

REPORT INFORMATION
  Report Type: Spontaneous
  Country: JP (occurrence: JP)
  Receive Date: 20141226
  Receipt Date: 20141226
  Transmission Date: 20150529
  Serious: Yes (Other)
  Sender: FDA-Public Use
  Company Number: JP-ASTRAZENECA-2014SE99075

PATIENT
  Age: 65 Year
  Sex: Female

DRUGS (9)
  1. LIDOCAINE. [Concomitant]
     Active Substance: LIDOCAINE
  2. MAXACALCITOL [Concomitant]
     Active Substance: MAXACALCITOL
  3. ISOTONIC SODIUM CHLORIDE SOLUTION [Concomitant]
     Active Substance: SODIUM CHLORIDE
  4. RECOMBINATION FERRIC OXIDE,SACCHA RATED [Concomitant]
     Indication: ANAEMIA
  5. GLUCOSE [Concomitant]
     Active Substance: DEXTROSE
     Indication: THERAPEUTIC PROCEDURE
     Dates: start: 20141023, end: 20141023
  6. MEROPEN [Suspect]
     Active Substance: MEROPENEM
     Indication: HEPATIC CYST INFECTION
     Route: 042
     Dates: start: 20141021, end: 20141101
  7. ARTIFICIAL DIALYSATE [Concomitant]
     Indication: DIALYSIS
  8. HEPARIN [Concomitant]
     Active Substance: HEPARIN SODIUM
     Dates: start: 20141028, end: 20141101
  9. DARBEPOETIN ALFA GENETICA [Concomitant]
     Indication: NEPHROGENIC ANAEMIA

REACTIONS (1)
  - Thrombosis in device [Recovering/Resolving]

NARRATIVE: CASE EVENT DATE: 20141021
